FAERS Safety Report 8180034-4 (Version None)
Quarter: 2012Q1

REPORT INFORMATION
  Report Type: 
  Country: None (occurrence: None)
  Receive Date: 20120302
  Receipt Date: 20120227
  Transmission Date: 20120608
  Serious: Yes (Other)
  Sender: FDA-Public Use
  Company Number: DE-US-EMD SERONO, INC.-7057972

PATIENT
  Sex: Female

DRUGS (4)
  1. REBIF [Suspect]
     Indication: MULTIPLE SCLEROSIS
     Route: 058
     Dates: start: 20070101, end: 20110505
  2. REBIF [Suspect]
  3. IMMUNE GLOBULIN (HUMAN) [Concomitant]
     Indication: PROPHYLAXIS
  4. ACETAMINOPHEN [Concomitant]
     Indication: PRODUCT USED FOR UNKNOWN INDICATION

REACTIONS (5)
  - INFLUENZA LIKE ILLNESS [None]
  - NORMAL NEWBORN [None]
  - FOETAL EXPOSURE DURING PREGNANCY [None]
  - MULTIPLE SCLEROSIS RELAPSE [None]
  - PREMATURE DELIVERY [None]
